FAERS Safety Report 20490334 (Version 4)
Quarter: 2022Q1

REPORT INFORMATION
  Report Type: Report from Study
  Country: US (occurrence: US)
  Receive Date: 20220218
  Receipt Date: 20220324
  Transmission Date: 20220423
  Serious: Yes (Hospitalization)
  Sender: FDA-Public Use
  Company Number: US-ASTELLAS-2022US005699

PATIENT

DRUGS (9)
  1. GILTERITINIB [Suspect]
     Active Substance: GILTERITINIB
     Indication: Acute myeloid leukaemia
     Route: 048
     Dates: start: 20211227, end: 20220123
  2. GILTERITINIB [Suspect]
     Active Substance: GILTERITINIB
     Indication: FLT3 gene mutation
  3. ETOPOSIDE [Suspect]
     Active Substance: ETOPOSIDE
     Indication: Acute myeloid leukaemia
     Dosage: 260 MG, CYCLIC (DAYS 1 - 5)
     Route: 042
     Dates: start: 20211222, end: 20211226
  4. ETOPOSIDE [Suspect]
     Active Substance: ETOPOSIDE
     Indication: FLT3 gene mutation
  5. CYTARABINE [Suspect]
     Active Substance: CYTARABINE
     Indication: Acute myeloid leukaemia
     Dosage: 100 MG/M2, TWICE DAILY (TOTAL DOSE: 1730MG) (10 DOSES)
     Route: 042
     Dates: start: 20211222, end: 20211226
  6. CYTARABINE [Suspect]
     Active Substance: CYTARABINE
     Indication: FLT3 gene mutation
  7. CILGAVIMAB [Suspect]
     Active Substance: CILGAVIMAB
     Indication: Product used for unknown indication
     Dosage: 150 MG, UNKNOWN FREQ. (ONE DOSE)
     Route: 030
     Dates: start: 20220120
  8. TIXAGEVIMAB [Suspect]
     Active Substance: TIXAGEVIMAB
     Indication: Product used for unknown indication
     Dosage: 150 MG, UNKNOWN FREQ.(ONE DOSE)
     Route: 030
     Dates: start: 20220120
  9. INFLUENZA VIRUS VACCINE [Suspect]
     Active Substance: INFLUENZA VIRUS VACCINE
     Indication: Product used for unknown indication
     Dosage: 0.5 ML, UNKNOWN FREQ. (ONE DOSE)
     Route: 030
     Dates: start: 20211029

REACTIONS (2)
  - Guillain-Barre syndrome [Recovered/Resolved with Sequelae]
  - Muscular weakness [Recovered/Resolved with Sequelae]

NARRATIVE: CASE EVENT DATE: 20220124
